FAERS Safety Report 7955413 (Version 2)
Quarter: 2013Q4

REPORT INFORMATION
  Report Type: Spontaneous
  Country: JP (occurrence: JP)
  Receive Date: 20110523
  Receipt Date: 20131121
  Transmission Date: 20140711
  Serious: Yes (Death)
  Sender: FDA-Public Use
  Company Number: JP-SANOFI-AVENTIS-2011SA030588

PATIENT
  Age: 72 Year
  Sex: Male
  Weight: 60 kg

DRUGS (8)
  1. TAXOTERE [Suspect]
     Indication: BLADDER CANCER
     Dosage: ON DAY 1
     Route: 041
     Dates: start: 20100603, end: 20100902
  2. GEMZAR [Suspect]
     Indication: BLADDER CANCER
     Dosage: 1000-800 MG/M2 ON DAY 1, 8 AND 15, EVERY 52 DAYS
     Route: 041
     Dates: start: 20100603, end: 20100902
  3. GRANISETRON HYDROCHLORIDE [Concomitant]
     Indication: PREMEDICATION
     Route: 041
     Dates: start: 20100603, end: 20100902
  4. DEXART [Concomitant]
     Indication: PREMEDICATION
     Route: 041
     Dates: start: 20100603, end: 20100902
  5. RANITIDINE HYDROCHLORIDE [Concomitant]
     Indication: PREMEDICATION
     Dates: start: 20100603, end: 20100902
  6. ASPARA POTASSIUM [Concomitant]
     Indication: PROPHYLAXIS
     Route: 048
     Dates: start: 20100114, end: 20100905
  7. MUNOBAL [Concomitant]
     Indication: HYPERTENSION
     Dates: start: 2002, end: 20100905
  8. LIVALO [Concomitant]
     Indication: HYPERLIPIDAEMIA
     Dates: start: 2002, end: 20100905

REACTIONS (1)
  - Myocardial infarction [Fatal]
